FAERS Safety Report 7091521-4 (Version None)
Quarter: 2010Q4

REPORT INFORMATION
  Report Type: 
  Country: None (occurrence: None)
  Receive Date: 20101105
  Receipt Date: 20101105
  Transmission Date: 20110411
  Serious: Yes (Life-Threatening, Other)
  Sender: FDA-Public Use
  Company Number: None

PATIENT
  Age: 76 Year
  Sex: Female
  Weight: 97.5234 kg

DRUGS (2)
  1. CIPRODEX [Suspect]
     Indication: EAR INFECTION
     Dosage: 3 DROPS 3 TIMES PER DAY OTIC
     Dates: start: 20101029, end: 20101104
  2. CIPROFLOXACIN HCL [Suspect]
     Indication: INFECTION
     Dosage: 1 TABLET 2 TIMES PER DAY PO
     Route: 048
     Dates: start: 20101101, end: 20101103

REACTIONS (8)
  - BALANCE DISORDER [None]
  - BEDRIDDEN [None]
  - BLOOD SODIUM DECREASED [None]
  - CHILLS [None]
  - DIZZINESS [None]
  - INCOHERENT [None]
  - NAUSEA [None]
  - VOMITING [None]
